FAERS Safety Report 14636573 (Version 1)
Quarter: 2018Q1

REPORT INFORMATION
  Report Type: Spontaneous
  Country: PK (occurrence: PK)
  Receive Date: 20180314
  Receipt Date: 20180314
  Transmission Date: 20180509
  Serious: Yes (Other)
  Sender: FDA-Public Use
  Company Number: PK-SA-2018SA072168

PATIENT
  Age: 41 Year
  Sex: Female

DRUGS (2)
  1. NEODIPAR [Suspect]
     Active Substance: METFORMIN HYDROCHLORIDE
     Route: 048
  2. AMARYL [Suspect]
     Active Substance: GLIMEPIRIDE
     Indication: HYPERGLYCAEMIA
     Route: 048
     Dates: start: 20180224

REACTIONS (4)
  - Neuropathy peripheral [Unknown]
  - Glycosylated haemoglobin increased [Unknown]
  - Visual impairment [Unknown]
  - Hyperglycaemia [Not Recovered/Not Resolved]
